FAERS Safety Report 4351035-9 (Version None)
Quarter: 2004Q2

REPORT INFORMATION
  Report Type: 
  Country: None (occurrence: None)
  Receive Date: 20040428
  Receipt Date: 20030915
  Transmission Date: 20050107
  Serious: Yes (Hospitalization)
  Sender: FDA-Public Use
  Company Number: 346819

PATIENT
  Age: 17 Year
  Sex: Female
  Weight: 73 kg

DRUGS (1)
  1. NAPROXEN [Suspect]
     Indication: DYSMENORRHOEA
     Dosage: 250 MG 4 PER DAY

REACTIONS (1)
  - RENAL PAPILLARY NECROSIS [None]
